FAERS Safety Report 6318773-X (Version None)
Quarter: 2009Q3

REPORT INFORMATION
  Report Type: 
  Country: None (occurrence: None)
  Receive Date: 20090819
  Receipt Date: 20090810
  Transmission Date: 20100115
  Serious: Yes (Hospitalization)
  Sender: FDA-Public Use
  Company Number: 230500K09BRA

PATIENT
  Sex: Male

DRUGS (3)
  1. REBIF [Suspect]
     Indication: RELAPSING-REMITTING MULTIPLE SCLEROSIS
     Dosage: 44 MCG, 3 IN 1 WEEKS
     Dates: start: 20040601
  2. DORFLEX (DORFLEX) [Suspect]
     Indication: TOOTHACHE
     Dosage: 1 DOSAGE FORMS
  3. DORIL (ANACIN) [Suspect]
     Indication: TOOTHACHE
     Dosage: 3 DOSAGE FORMS

REACTIONS (3)
  - CHEST PAIN [None]
  - DYSPNOEA [None]
  - TACHYCARDIA [None]
